FAERS Safety Report 7815000-9 (Version None)
Quarter: 2011Q4

REPORT INFORMATION
  Report Type: 
  Country: None (occurrence: None)
  Receive Date: 20111014
  Receipt Date: 20111006
  Transmission Date: 20120403
  Serious: Yes (Hospitalization, Other)
  Sender: FDA-Public Use
  Company Number: JP-GLAXOSMITHKLINE-B0729721A

PATIENT
  Age: 25 Year
  Sex: Female

DRUGS (4)
  1. PHENOBARBITAL TAB [Concomitant]
  2. PHENOBARBITAL TAB [Suspect]
     Dosage: 52IUAX PER DAY
     Route: 048
  3. ZOLPIDEM [Suspect]
     Dosage: 100MG PER DAY
     Route: 048
  4. PAXIL [Suspect]
     Dosage: 430MG PER DAY
     Route: 048

REACTIONS (6)
  - INTENTIONAL OVERDOSE [None]
  - HYPOTENSION [None]
  - GLOSSOPTOSIS [None]
  - LACERATION [None]
  - SUICIDE ATTEMPT [None]
  - LOSS OF CONSCIOUSNESS [None]
